FAERS Safety Report 13786400 (Version 1)
Quarter: 2017Q3

REPORT INFORMATION
  Report Type: Spontaneous
  Country: US (occurrence: US)
  Receive Date: 20170725
  Receipt Date: 20170725
  Transmission Date: 20171127
  Serious: No
  Sender: FDA-Public Use
  Company Number: US-AMGEN-USASP2017109495

PATIENT
  Age: 61 Year
  Sex: Female

DRUGS (8)
  1. CATS CLAW [Concomitant]
     Dosage: 350 MG, UNK
     Route: 065
  2. METHOTREXATE. [Concomitant]
     Active Substance: METHOTREXATE
     Dosage: 2.5 MG, UNK
     Route: 065
  3. ENBREL [Suspect]
     Active Substance: ETANERCEPT
     Indication: PRODUCT USED FOR UNKNOWN INDICATION
     Dosage: 50 MG, QWK (ON THE SAME DAY OF WEEK)
     Route: 058
     Dates: start: 20170612
  4. CURCUMIN [Concomitant]
     Active Substance: CURCUMIN
     Dosage: UNK
     Route: 065
  5. FISH OIL [Concomitant]
     Active Substance: FISH OIL
     Dosage: UNK
     Route: 065
  6. PREDNISONE. [Concomitant]
     Active Substance: PREDNISONE
     Dosage: 5 MG, UNK
     Route: 065
  7. GINGER. [Concomitant]
     Active Substance: GINGER
     Dosage: 250 MG, UNK
     Route: 065
  8. ARMOUR THYROID [Concomitant]
     Active Substance: THYROID, PORCINE
     Dosage: 60 MG, UNK
     Route: 065

REACTIONS (5)
  - Gingival bleeding [Not Recovered/Not Resolved]
  - Injection site pruritus [Not Recovered/Not Resolved]
  - Injection site erythema [Not Recovered/Not Resolved]
  - Gingival pain [Not Recovered/Not Resolved]
  - Food interaction [Not Recovered/Not Resolved]

NARRATIVE: CASE EVENT DATE: 2017
